FAERS Safety Report 11924951 (Version 1)
Quarter: 2016Q1

REPORT INFORMATION
  Report Type: Report from Study
  Country: US (occurrence: US)
  Receive Date: 20160118
  Receipt Date: 20160118
  Transmission Date: 20160526
  Serious: Yes (Hospitalization)
  Sender: FDA-Public Use
  Company Number: US-BIOGEN-2016BI00174155

PATIENT
  Age: 54 Year
  Sex: Female

DRUGS (2)
  1. TYSABRI [Suspect]
     Active Substance: NATALIZUMAB
     Indication: MULTIPLE SCLEROSIS
     Route: 042
     Dates: start: 20130411
  2. MORPHINE [Concomitant]
     Active Substance: MORPHINE
     Indication: PRODUCT USED FOR UNKNOWN INDICATION
     Route: 065
     Dates: start: 201508, end: 2015

REACTIONS (6)
  - Muscle spasms [Not Recovered/Not Resolved]
  - Nerve root compression [Recovered/Resolved]
  - Intervertebral disc compression [Recovered/Resolved]
  - Spinal cord disorder [Not Recovered/Not Resolved]
  - Choking [Recovered/Resolved]
  - Abasia [Recovered/Resolved with Sequelae]

NARRATIVE: CASE EVENT DATE: 2015
